FAERS Safety Report 11670016 (Version 1)
Quarter: 2015Q4

REPORT INFORMATION
  Report Type: Report from Study
  Country: US (occurrence: US)
  Receive Date: 20151027
  Receipt Date: 20151027
  Transmission Date: 20160304
  Serious: Yes (Other)
  Sender: FDA-Public Use
  Company Number: US-AMGEN-USASL2015111689

PATIENT
  Age: 55 Year
  Sex: Female

DRUGS (1)
  1. ENBREL [Suspect]
     Active Substance: ETANERCEPT
     Indication: RHEUMATOID ARTHRITIS
     Dosage: 50 MG, QWK
     Route: 065

REACTIONS (5)
  - Meniscus injury [Unknown]
  - Joint range of motion decreased [Unknown]
  - Chondropathy [Unknown]
  - Joint fluid drainage [Unknown]
  - Skin discolouration [Unknown]

NARRATIVE: CASE EVENT DATE: 201510
